FAERS Safety Report 8352246 (Version 3)
Quarter: 2012Q4

REPORT INFORMATION
  Report Type: Report from Study
  Country: US (occurrence: US)
  Receive Date: 20120124
  Receipt Date: 20121008
  Transmission Date: 20130627
  Serious: Yes (Other)
  Sender: FDA-Public Use
  Company Number: US-RB-033327-11

PATIENT
  Age: 29 None
  Sex: Female

DRUGS (10)
  1. SUBOXONE FILM [Suspect]
     Indication: DRUG DEPENDENCE
     Dosage: Various doses
     Route: 060
     Dates: start: 201105, end: 20110923
  2. SUBUTEX [Suspect]
     Indication: DRUG DEPENDENCE
     Dosage: Various doses
     Route: 060
     Dates: start: 201105, end: 20110923
  3. SUBOXONE TABLET [Suspect]
     Indication: DRUG DEPENDENCE
     Dosage: 4 mg daily
     Route: 060
     Dates: start: 2010, end: 201105
  4. SUBOXONE TABLET [Suspect]
     Dosage: Various doses
     Route: 060
     Dates: start: 201105, end: 20110923
  5. GENERIC BUPRENORPHINE [Suspect]
     Indication: DRUG DEPENDENCE
     Dosage: Various doses
     Route: 060
     Dates: start: 201105, end: 20110923
  6. OTHER OPIATES [Suspect]
     Indication: DRUG DEPENDENCE
     Dosage: Unknown dosing regimen
     Route: 065
     Dates: start: 201105, end: 20110923
  7. XANAX [Suspect]
     Indication: PRODUCT USED FOR UNKNOWN INDICATION
     Dosage: Dosing details unknown
     Route: 065
  8. MORPHINE [Suspect]
     Indication: PRODUCT USED FOR UNKNOWN INDICATION
     Dosage: Dosing details unknown
     Route: 065
  9. ALCOHOL [Suspect]
     Indication: PRODUCT USED FOR UNKNOWN INDICATION
     Dosage: Dosing details unknown
     Route: 065
  10. NICOTINE [Suspect]
     Indication: PRODUCT USED FOR UNKNOWN INDICATION
     Dosage: Dosing details unknown
     Route: 065

REACTIONS (5)
  - Wrong technique in drug usage process [Recovered/Resolved]
  - Exposure during pregnancy [Recovered/Resolved]
  - Substance abuse [Recovered/Resolved]
  - Drug abuse [Recovered/Resolved]
  - Premature delivery [Recovered/Resolved]
